FAERS Safety Report 23044098 (Version 2)
Quarter: 2023Q4

REPORT INFORMATION
  Report Type: Spontaneous
  Country: KR (occurrence: KR)
  Receive Date: 20231009
  Receipt Date: 20231016
  Transmission Date: 20240109
  Serious: Yes (Life-Threatening, Hospitalization, Other)
  Sender: FDA-Public Use
  Company Number: None

PATIENT
  Age: 7 Year
  Sex: Male

DRUGS (4)
  1. PREDNISOLONE [Suspect]
     Active Substance: PREDNISOLONE
     Indication: Immunosuppressant drug therapy
     Dosage: UNK (LOW-DOSE)
     Route: 065
  2. PREDNISOLONE [Suspect]
     Active Substance: PREDNISOLONE
     Indication: Renal transplant
  3. TACROLIMUS [Suspect]
     Active Substance: TACROLIMUS
     Indication: Immunosuppressant drug therapy
     Dosage: LOW DOSE TROUGH LEVEL ({5?NG/ML)
     Route: 065
  4. TACROLIMUS [Suspect]
     Active Substance: TACROLIMUS
     Indication: Renal transplant

REACTIONS (7)
  - Respiratory failure [Unknown]
  - Sinusitis [Unknown]
  - Cytomegalovirus infection [Unknown]
  - Rhinovirus infection [Unknown]
  - Otitis media acute [Unknown]
  - Pneumonia [Unknown]
  - Adenovirus infection [Unknown]
